FAERS Safety Report 9688291 (Version 1)
Quarter: 2013Q4

REPORT INFORMATION
  Report Type: Spontaneous
  Country: SE (occurrence: SE)
  Receive Date: 20131114
  Receipt Date: 20131114
  Transmission Date: 20140711
  Serious: Yes (Hospitalization)
  Sender: FDA-Public Use
  Company Number: SE-JNJFOC-20131105012

PATIENT
  Age: 67 Year
  Sex: Female

DRUGS (3)
  1. REMICADE [Suspect]
     Indication: RHEUMATOID ARTHRITIS
     Route: 042
     Dates: start: 20121119, end: 20130212
  2. METHOTREXATE [Concomitant]
     Route: 065
     Dates: start: 20090319
  3. PREDNISOLONE [Concomitant]
     Route: 065
     Dates: start: 20120924, end: 20130212

REACTIONS (1)
  - Herpes zoster [Recovered/Resolved]
